FAERS Safety Report 9869487 (Version 2)
Quarter: 2014Q1

REPORT INFORMATION
  Report Type: Spontaneous
  Country: US (occurrence: US)
  Receive Date: 20140205
  Receipt Date: 20140306
  Transmission Date: 20141002
  Serious: Yes (Hospitalization)
  Sender: FDA-Public Use
  Company Number: US-PFIZER INC-2014028734

PATIENT
  Age: 69 Year
  Sex: Male

DRUGS (7)
  1. XALKORI [Suspect]
     Indication: LUNG NEOPLASM MALIGNANT
     Dosage: 250 MG, UNK
     Dates: start: 20140122
  2. ASPIRIN [Concomitant]
     Dosage: UNK
  3. AZILECT [Concomitant]
     Dosage: UNK
  4. LEVODOPA-CARBIDOPA [Concomitant]
     Dosage: UNK
  5. FINASTERIDE [Concomitant]
     Dosage: UNK
  6. METOPROLOL TARTRATE [Concomitant]
     Dosage: UNK
  7. OMEPRAZOLE [Concomitant]
     Dosage: UNK

REACTIONS (3)
  - Pneumonia [Unknown]
  - Pyrexia [Unknown]
  - Diarrhoea [Unknown]
